FAERS Safety Report 6707673-9 (Version None)
Quarter: 2010Q2

REPORT INFORMATION
  Report Type: 
  Country: None (occurrence: None)
  Receive Date: 20100503
  Receipt Date: 20091002
  Transmission Date: 20101027
  Serious: No
  Sender: FDA-Public Use
  Company Number: US-ASTRAZENECA-2009SE17686

PATIENT
  Age: 66 Year
  Sex: Female

DRUGS (4)
  1. NEXIUM [Suspect]
     Indication: GASTROOESOPHAGEAL REFLUX DISEASE
     Route: 048
     Dates: start: 20090701
  2. NEXIUM [Suspect]
     Route: 048
     Dates: start: 20090701
  3. ALLEGRA [Concomitant]
  4. CALCIUM WITH MAGNESIUM [Concomitant]

REACTIONS (2)
  - ASTHMA [None]
  - ERUCTATION [None]
